FAERS Safety Report 20450022 (Version 1)
Quarter: 2022Q1

REPORT INFORMATION
  Report Type: Spontaneous
  Country: US (occurrence: None)
  Receive Date: 20220208
  Receipt Date: 20220208
  Transmission Date: 20220423
  Serious: Yes (unspecified)
  Sender: FDA-Public Use
  Company Number: None

PATIENT
  Age: 15 Year
  Sex: Female
  Weight: 54 kg

DRUGS (5)
  1. SINGULAIR [Suspect]
     Active Substance: MONTELUKAST SODIUM
     Indication: Asthma
     Dates: start: 20150115, end: 20211203
  2. SINGULAIR [Suspect]
     Active Substance: MONTELUKAST SODIUM
     Indication: Seasonal allergy
  3. SINGULAIR [Suspect]
     Active Substance: MONTELUKAST SODIUM
     Indication: Allergy to animal
  4. XOPENEX [Concomitant]
     Active Substance: LEVALBUTEROL HYDROCHLORIDE
  5. ALLEGRA [Concomitant]
     Active Substance: FEXOFENADINE HYDROCHLORIDE

REACTIONS (13)
  - Psychiatric symptom [None]
  - Agitation [None]
  - Nightmare [None]
  - Confusional state [None]
  - Memory impairment [None]
  - Learning disorder [None]
  - Negative thoughts [None]
  - Headache [None]
  - Abdominal pain upper [None]
  - Anxiety [None]
  - Insomnia [None]
  - Fatigue [None]
  - Withdrawal syndrome [None]

NARRATIVE: CASE EVENT DATE: 20211115
